FAERS Safety Report 7870971-X (Version None)
Quarter: 2011Q4

REPORT INFORMATION
  Report Type: 
  Country: None (occurrence: None)
  Receive Date: 20111027
  Receipt Date: 20111017
  Transmission Date: 20120403
  Serious: Yes (Other)
  Sender: FDA-Public Use
  Company Number: 2011MA015349

PATIENT
  Age: 66 Year
  Sex: Female

DRUGS (6)
  1. BENDROFLUMETHIAZIDE [Concomitant]
  2. METRONIDAZOLE [Concomitant]
  3. DIPROBASE [Concomitant]
  4. CLOBETASOL PROPIONATE [Concomitant]
  5. FLOXACILLIN SODIUM [Concomitant]
  6. DOXAZOSIN MESYLATE [Suspect]
     Dates: start: 20111007

REACTIONS (3)
  - BLOOD PRESSURE DECREASED [None]
  - MALAISE [None]
  - FLUSHING [None]
